FAERS Safety Report 4656817-1 (Version None)
Quarter: 2005Q2

REPORT INFORMATION
  Report Type: 
  Country: None (occurrence: None)
  Receive Date: 20050505
  Receipt Date: 20050428
  Transmission Date: 20051028
  Serious: Yes (Disabling)
  Sender: FDA-Public Use
  Company Number: 2005SE02565

PATIENT
  Age: 87 Year
  Sex: Female

DRUGS (1)
  1. BLOPRESS [Suspect]

REACTIONS (4)
  - BLINDNESS [None]
  - BLOOD PRESSURE SYSTOLIC INCREASED [None]
  - INTRAOCULAR PRESSURE INCREASED [None]
  - RETINAL HAEMORRHAGE [None]
